FAERS Safety Report 9965471 (Version 3)
Quarter: 2014Q1

REPORT INFORMATION
  Report Type: Spontaneous
  Country: JP (occurrence: JP)
  Receive Date: 20140305
  Receipt Date: 20140324
  Transmission Date: 20141002
  Serious: Yes (Other)
  Sender: FDA-Public Use
  Company Number: JP-PFIZER INC-2014063475

PATIENT
  Age: 7 Decade
  Sex: Female

DRUGS (3)
  1. LIPITOR [Suspect]
     Dosage: UNK
     Route: 048
  2. LIPITOR [Suspect]
     Dosage: UNK
     Route: 048
  3. ZETIA [Concomitant]
     Dosage: UNK
     Route: 048

REACTIONS (3)
  - Lip swelling [Unknown]
  - Eye swelling [Unknown]
  - Fatigue [Unknown]
